FAERS Safety Report 13428410 (Version 1)
Quarter: 2017Q2

REPORT INFORMATION
  Report Type: Report from Study
  Country: JP (occurrence: JP)
  Receive Date: 20170411
  Receipt Date: 20170411
  Transmission Date: 20170830
  Serious: Yes (Other)
  Sender: FDA-Public Use
  Company Number: JP-MYLANLABS-2017M1021565

PATIENT

DRUGS (4)
  1. CLARITHROMYCIN. [Concomitant]
     Active Substance: CLARITHROMYCIN
     Indication: TUBERCULOSIS
     Route: 065
  2. MINOCYCLINE GNR [Concomitant]
     Indication: TUBERCULOSIS
     Route: 065
  3. ENVIOMYCIN [Concomitant]
     Indication: TUBERCULOSIS
     Route: 065
  4. LINEZOLID. [Suspect]
     Active Substance: LINEZOLID
     Indication: TUBERCULOSIS
     Dosage: LINEZOLID DOSE AT ADR 90G; TOTAL DOSE 198G
     Route: 065

REACTIONS (1)
  - Hepatotoxicity [Unknown]
